FAERS Safety Report 6100954-1 (Version None)
Quarter: 2009Q1

REPORT INFORMATION
  Report Type: 
  Country: None (occurrence: None)
  Receive Date: 20090227
  Receipt Date: 20090217
  Transmission Date: 20090719
  Serious: Yes (Other)
  Sender: FDA-Public Use
  Company Number: 231774K09USA

PATIENT
  Age: 21 Year
  Sex: Female

DRUGS (3)
  1. REBIF [Suspect]
     Indication: MULTIPLE SCLEROSIS
     Dosage: 22 MCG, 3 IN 1 WEEKS, SUBCUTANEOUS
     Route: 058
     Dates: start: 20081230
  2. TYLENOL (COTYLENOL) [Concomitant]
  3. OVER THE COUNTER EXCEDRIN (EXCEDRIN /00214201/) [Concomitant]

REACTIONS (3)
  - EPISTAXIS [None]
  - INJECTION SITE HAEMATOMA [None]
  - RECTAL HAEMORRHAGE [None]
